FAERS Safety Report 10778548 (Version 2)
Quarter: 2015Q1

REPORT INFORMATION
  Report Type: Report from Study
  Country: ZA (occurrence: ZA)
  Receive Date: 20150210
  Receipt Date: 20150211
  Transmission Date: 20150721
  Serious: Yes (Death)
  Sender: FDA-Public Use
  Company Number: ZA-AMGEN-ZAFSL2015011298

PATIENT
  Age: 54 Year
  Sex: Male

DRUGS (1)
  1. ARANESP [Suspect]
     Active Substance: DARBEPOETIN ALFA
     Indication: HAEMODIALYSIS
     Dosage: 60 MUG, QWK
     Route: 065
     Dates: start: 20140128

REACTIONS (1)
  - Death [Fatal]

NARRATIVE: CASE EVENT DATE: 20150126
